FAERS Safety Report 25894753 (Version 1)
Quarter: 2025Q4

REPORT INFORMATION
  Report Type: Spontaneous
  Country: US (occurrence: US)
  Receive Date: 20251008
  Receipt Date: 20251008
  Transmission Date: 20260118
  Serious: No
  Sender: SUNOVION
  Company Number: US-SMPA-2025SPA012192

PATIENT
  Age: 73 Year
  Sex: Male

DRUGS (1)
  1. ORGOVYX [Suspect]
     Active Substance: RELUGOLIX
     Indication: Prostate cancer
     Dosage: ONE TABLET BY MOUTH ONCE DAILY
     Route: 048

REACTIONS (2)
  - Joint swelling [Unknown]
  - Peripheral swelling [Unknown]
